FAERS Safety Report 5110132-0 (Version None)
Quarter: 2006Q3

REPORT INFORMATION
  Report Type: 
  Country: None (occurrence: None)
  Receive Date: 20060918
  Receipt Date: 20060904
  Transmission Date: 20061208
  Serious: No
  Sender: FDA-Public Use
  Company Number: 2006-147262-NL

PATIENT
  Age: 32 Year
  Sex: Female

DRUGS (8)
  1. ETONOGESTREL [Suspect]
     Indication: CONTRACEPTION
     Dosage: DF SUBCUTANEOUS
     Route: 058
     Dates: start: 20050919, end: 20060901
  2. THIAMAZOLE [Concomitant]
  3. PROPRANOLOL HYDROCHLORIDE [Concomitant]
  4. PANTOPRAZOLE SODIUM [Concomitant]
  5. IBUPROFEN [Concomitant]
  6. TORSEMIDE [Concomitant]
  7. SERTRALINE [Concomitant]
  8. MINOXIDIL [Concomitant]

REACTIONS (2)
  - ALOPECIA [None]
  - HYPOACUSIS [None]
